FAERS Safety Report 17970301 (Version 1)
Quarter: 2020Q3

REPORT INFORMATION
  Report Type: Report from Study
  Country: None (occurrence: ES)
  Receive Date: 20200702
  Receipt Date: 20200702
  Transmission Date: 20201103
  Serious: Yes (Other)
  Sender: FDA-Public Use
  Company Number: ES-ABBVIE-20K-144-3467594-00

PATIENT
  Age: 71 Year
  Sex: Male

DRUGS (4)
  1. KALETRA [Suspect]
     Active Substance: LOPINAVIR\RITONAVIR
     Indication: COVID-19 PNEUMONIA
     Route: 048
     Dates: start: 20200322, end: 20200326
  2. DOLQUINE [Suspect]
     Active Substance: HYDROXYCHLOROQUINE SULFATE
     Indication: COVID-19 PNEUMONIA
     Route: 065
     Dates: start: 20200322, end: 20200326
  3. AZITROMICINA [Suspect]
     Active Substance: AZITHROMYCIN DIHYDRATE
     Indication: COVID-19 PNEUMONIA
     Dosage: 1000 MG/ 1 DIA Y 500 MG RESTO
     Route: 065
     Dates: start: 20200322, end: 20200326
  4. CLARITROMICINA [Suspect]
     Active Substance: CLARITHROMYCIN
     Indication: COVID-19 PNEUMONIA
     Route: 065
     Dates: start: 20200325

REACTIONS (5)
  - Depressed level of consciousness [Recovered/Resolved]
  - Throat irritation [Recovering/Resolving]
  - Agitation [Recovering/Resolving]
  - Nausea [Recovered/Resolved]
  - Dizziness [Recovered/Resolved]

NARRATIVE: CASE EVENT DATE: 20200325
